FAERS Safety Report 10203553 (Version 1)
Quarter: 2014Q2

REPORT INFORMATION
  Report Type: Spontaneous
  Country: FR (occurrence: FR)
  Receive Date: 20140529
  Receipt Date: 20140529
  Transmission Date: 20141212
  Serious: Yes (Life-Threatening, Hospitalization)
  Sender: FDA-Public Use
  Company Number: PHHY2014FR061846

PATIENT
  Age: 68 Year
  Sex: Male

DRUGS (6)
  1. SINTROM [Suspect]
     Dosage: 0.25 DF, DAILY
     Route: 048
  2. ALLOPURINOL [Interacting]
     Dosage: 1 DF, QD
     Route: 048
  3. PRAVASTATIN [Interacting]
     Dosage: 20 MG, QD
     Route: 048
  4. ATENOLOL [Concomitant]
     Dosage: UNK UKN, UNK
  5. STRESAM [Concomitant]
     Dosage: UNK UKN, UNK
  6. PIASCLEDINE                        /01305801/ [Concomitant]
     Dosage: UNK UKN, UNK

REACTIONS (2)
  - Shock haemorrhagic [Recovered/Resolved]
  - International normalised ratio increased [Recovered/Resolved]
